FAERS Safety Report 12131145 (Version 1)
Quarter: 2016Q1

REPORT INFORMATION
  Report Type: Spontaneous
  Country: US (occurrence: US)
  Receive Date: 20160301
  Receipt Date: 20160301
  Transmission Date: 20160526
  Serious: No
  Sender: FDA-Public Use
  Company Number: US-PFIZER INC-2016120118

PATIENT
  Sex: Female

DRUGS (2)
  1. GILENYA [Suspect]
     Active Substance: FINGOLIMOD HYDROCHLORIDE
     Dosage: UNK
  2. NEURONTIN [Suspect]
     Active Substance: GABAPENTIN
     Dosage: 2700 MG, DAILY

REACTIONS (2)
  - Cognitive disorder [Unknown]
  - Mood altered [Unknown]
